FAERS Safety Report 9120424 (Version 1)
Quarter: 2013Q1

REPORT INFORMATION
  Report Type: Spontaneous
  Country: AU (occurrence: AU)
  Receive Date: 20130226
  Receipt Date: 20130226
  Transmission Date: 20140127
  Serious: Yes (Other)
  Sender: FDA-Public Use
  Company Number: AU-WATSON-2012-21898

PATIENT
  Age: 46 Year
  Sex: Female

DRUGS (12)
  1. PHENTERMINE [Suspect]
     Indication: OBESITY
     Dosage: UNK, UNKNOWN
     Route: 065
  2. TRAMADOL HYDROCHLORIDE (UNKNOWN) [Suspect]
     Indication: ABDOMINAL PAIN
     Dosage: 100 MG, UNKNOWN
     Route: 065
  3. INSULIN [Concomitant]
     Indication: TYPE 2 DIABETES MELLITUS
     Dosage: UNK, UNKNOWN
     Route: 065
  4. RAMIPRIL [Concomitant]
     Indication: PRODUCT USED FOR UNKNOWN INDICATION
     Dosage: UNK, UNKNOWN
     Route: 065
  5. ATORVASTATIN [Concomitant]
     Indication: PRODUCT USED FOR UNKNOWN INDICATION
     Dosage: UNK, UNKNOWN
     Route: 065
  6. PROPOFOL [Concomitant]
     Indication: INDUCTION OF ANAESTHESIA
     Dosage: 150 MG, THEN 80 MG
     Route: 065
  7. FENTANYL [Concomitant]
     Indication: INDUCTION OF ANAESTHESIA
     Dosage: 100 MG, UNKNOWN
     Route: 065
  8. ROCURONIUM BROMIDE [Concomitant]
     Indication: INDUCTION OF ANAESTHESIA
     Dosage: 35 MG, THEN 50 MG
     Route: 065
  9. ALFENTANIL [Concomitant]
     Indication: INDUCTION OF ANAESTHESIA
     Dosage: 2 MG, UNKNOWN
     Route: 065
  10. MORPHINE [Concomitant]
     Indication: INDUCTION OF ANAESTHESIA
     Dosage: 20 MG, UNKNOWN
     Route: 065
  11. HYDRALAZINE [Concomitant]
     Indication: ABDOMINAL PAIN
     Dosage: 5 MG, UNKNOWN
     Route: 065
  12. MIDAZOLAM [Concomitant]
     Indication: PRODUCT USED FOR UNKNOWN INDICATION
     Dosage: 2.5 MG, THEN 1 MG
     Route: 065

REACTIONS (2)
  - Procedural hypertension [Recovered/Resolved]
  - Drug interaction [Recovered/Resolved]
